FAERS Safety Report 4796554-6 (Version None)
Quarter: 2005Q3

REPORT INFORMATION
  Report Type: 
  Country: None (occurrence: None)
  Receive Date: 20050916
  Receipt Date: 20041005
  Transmission Date: 20060218
  Serious: Yes (Other)
  Sender: FDA-Public Use
  Company Number: US-JNJFOC-20041002724

PATIENT
  Sex: Female

DRUGS (1)
  1. TOPAMAX [Suspect]
     Indication: CONVULSION
     Dosage: 4 YEARS

REACTIONS (1)
  - WEIGHT DECREASED [None]
